FAERS Safety Report 4355170-0 (Version None)
Quarter: 2004Q2

REPORT INFORMATION
  Report Type: 
  Country: None (occurrence: None)
  Receive Date: 20040510
  Receipt Date: 20030428
  Transmission Date: 20050107
  Serious: Yes (Death, Hospitalization)
  Sender: FDA-Public Use
  Company Number: PHNU2003DE01787

PATIENT
  Age: 4 Year
  Sex: Female
  Weight: 16 kg

DRUGS (6)
  1. SIMULECT [Suspect]
     Indication: RENAL TRANSPLANT
     Dosage: 10 MG, ONCE/SINGLE
     Route: 042
     Dates: start: 20030326, end: 20030326
  2. SIMULECT [Suspect]
     Dosage: 10 MG, ONCE/SINGLE
     Dates: start: 20030330, end: 20030330
  3. SANDIMMUNE [Suspect]
     Indication: RENAL TRANSPLANT
     Route: 048
  4. PREDNISONE [Concomitant]
     Indication: RENAL TRANSPLANT
     Dates: start: 20030326
  5. CYMEVEN ORAL [Concomitant]
  6. CELLCEPT [Concomitant]
     Indication: RENAL TRANSPLANT
     Route: 048
     Dates: start: 20030326, end: 20030409

REACTIONS (10)
  - ACUTE RESPIRATORY DISTRESS SYNDROME [None]
  - BLOOD LACTATE DEHYDROGENASE INCREASED [None]
  - C-REACTIVE PROTEIN INCREASED [None]
  - DRUG LEVEL INCREASED [None]
  - PARAINFLUENZAE VIRUS INFECTION [None]
  - PLATELET COUNT DECREASED [None]
  - PNEUMONIA VIRAL [None]
  - PULMONARY OEDEMA [None]
  - RESPIRATORY FAILURE [None]
  - TRANSPLANT REJECTION [None]
